FAERS Safety Report 6962737-X (Version None)
Quarter: 2010Q3

REPORT INFORMATION
  Report Type: 
  Country: None (occurrence: None)
  Receive Date: 20100823
  Receipt Date: 20100719
  Transmission Date: 20110219
  Serious: No
  Sender: FDA-Public Use
  Company Number: 014673

PATIENT
  Sex: Female
  Weight: 72.5 kg

DRUGS (6)
  1. CIMZIA [Suspect]
     Indication: CROHN'S DISEASE
     Dosage: (400 MG 1X/4 WEEKS SUBCUTANEOUS)
     Route: 058
     Dates: start: 20090609
  2. IMURAN [Concomitant]
  3. CIMETIDINE [Concomitant]
  4. BENICAR [Concomitant]
  5. ACTONEL [Concomitant]
  6. SYNTHROID [Concomitant]

REACTIONS (7)
  - ABDOMINAL PAIN [None]
  - ANORECTAL DISORDER [None]
  - CROHN'S DISEASE [None]
  - FREQUENT BOWEL MOVEMENTS [None]
  - HAEMORRHOIDS [None]
  - PYREXIA [None]
  - WEIGHT DECREASED [None]
